FAERS Safety Report 5773522-9 (Version None)
Quarter: 2008Q2

REPORT INFORMATION
  Report Type: 
  Country: None (occurrence: None)
  Receive Date: 20080616
  Receipt Date: 20080605
  Transmission Date: 20081010
  Serious: Yes (Other)
  Sender: FDA-Public Use
  Company Number: US-ROCHE-568829

PATIENT
  Age: 30 Year
  Sex: Female

DRUGS (2)
  1. PEGASYS [Suspect]
     Indication: DRUG USE FOR UNKNOWN INDICATION
     Route: 065
     Dates: start: 20060101, end: 20070515
  2. COPEGUS [Suspect]
     Indication: DRUG USE FOR UNKNOWN INDICATION
     Route: 065
     Dates: start: 20060101, end: 20070515

REACTIONS (6)
  - CONVULSION [None]
  - FAECAL INCONTINENCE [None]
  - MEMORY IMPAIRMENT [None]
  - PAIN [None]
  - SPEECH DISORDER [None]
  - URINARY INCONTINENCE [None]
